FAERS Safety Report 17346209 (Version 2)
Quarter: 2020Q2

REPORT INFORMATION
  Report Type: Report from Study
  Country: US (occurrence: US)
  Receive Date: 20200129
  Receipt Date: 20200512
  Transmission Date: 20200713
  Serious: Yes (Hospitalization)
  Sender: FDA-Public Use
  Company Number: US-EXELIXIS-CABO-19025203

PATIENT
  Sex: Male

DRUGS (1)
  1. CABOMETYX [Suspect]
     Active Substance: CABOZANTINIB S-MALATE
     Indication: RENAL CANCER
     Dosage: 60 MG, QD
     Route: 048
     Dates: end: 20200114

REACTIONS (5)
  - Fatigue [Recovering/Resolving]
  - Dehydration [Unknown]
  - Thrombosis [Unknown]
  - Constipation [Recovering/Resolving]
  - Cerebrovascular accident [Unknown]
